FAERS Safety Report 6741807-5 (Version None)
Quarter: 2010Q2

REPORT INFORMATION
  Report Type: 
  Country: None (occurrence: None)
  Receive Date: 20100526
  Receipt Date: 20100517
  Transmission Date: 20101027
  Serious: Yes (Death)
  Sender: FDA-Public Use
  Company Number: FR-ROCHE-704031

PATIENT
  Sex: Male
  Weight: 62.5 kg

DRUGS (8)
  1. METHOXY POLYETHYLENE GLYCOL-EPOETIN BETA [Suspect]
     Dosage: DATE OF LAST DOSE PRIOR TO SAE: 27 APRIL 2010. FORM: PFS. DRUG PERMANENTLY DISCONTINUED.
     Route: 042
     Dates: start: 20100325, end: 20100513
  2. CARDENSIEL [Concomitant]
     Dosage: DOSE: 1.25.
     Dates: start: 20080417, end: 20100513
  3. CORTANCYL [Concomitant]
     Dates: start: 20080417, end: 20100513
  4. CALCIDIA [Concomitant]
     Dosage: DOSE CANNOT BE READ.
     Dates: start: 20080401, end: 20100513
  5. KARDEGIC [Concomitant]
     Dates: start: 20080417, end: 20100513
  6. OMEPRAZOLE [Concomitant]
     Dates: start: 20090126, end: 20100513
  7. OMEPRAZOLE [Concomitant]
  8. OMIX [Concomitant]
     Dates: start: 20090126, end: 20100513

REACTIONS (1)
  - LUNG DISORDER [None]
